FAERS Safety Report 7539888-4 (Version None)
Quarter: 2011Q2

REPORT INFORMATION
  Report Type: 
  Country: None (occurrence: None)
  Receive Date: 20110610
  Receipt Date: 20110601
  Transmission Date: 20111010
  Serious: Yes (Hospitalization)
  Sender: FDA-Public Use
  Company Number: JP-PFIZER INC-2011118917

PATIENT
  Age: 68 Year
  Sex: Male

DRUGS (4)
  1. PLAVIX [Suspect]
     Dosage: UNK
     Route: 048
     Dates: start: 20101201, end: 20110401
  2. LIPITOR [Suspect]
     Dosage: 10 MG, DAILY
     Route: 048
     Dates: start: 20101201, end: 20110401
  3. TRICHLORMETHIAZIDE [Suspect]
     Dosage: UNK
     Route: 048
     Dates: start: 20101201, end: 20110401
  4. LANSOPRAZOLE [Suspect]
     Dosage: UNK
     Route: 048
     Dates: start: 20101201, end: 20110401

REACTIONS (1)
  - INTERSTITIAL LUNG DISEASE [None]
